FAERS Safety Report 11467932 (Version 1)
Quarter: 2015Q3

REPORT INFORMATION
  Report Type: Spontaneous
  Country: IN (occurrence: None)
  Receive Date: 20150904
  Receipt Date: 20150904
  Transmission Date: 20151125
  Serious: Yes (Death, Hospitalization)
  Sender: FDA-Public Use
  Company Number: None

PATIENT
  Age: 56 Year
  Sex: Female
  Weight: 35 kg

DRUGS (1)
  1. OXETOL SR 600 600 MG OXETOL [Suspect]
     Active Substance: OXCARBAZEPINE
     Indication: SLEEP DISORDER
     Dosage: 1 PILLS
     Route: 048

REACTIONS (1)
  - Stevens-Johnson syndrome [None]

NARRATIVE: CASE EVENT DATE: 20150722
